FAERS Safety Report 15577305 (Version 2)
Quarter: 2018Q4

REPORT INFORMATION
  Report Type: Spontaneous
  Country: US (occurrence: US)
  Receive Date: 20181102
  Receipt Date: 20181206
  Transmission Date: 20190205
  Serious: No
  Sender: FDA-Public Use
  Company Number: US-ASTRAZENECA-2018SF31393

PATIENT
  Age: 974 Month
  Sex: Female

DRUGS (2)
  1. SYMBICORT [Suspect]
     Active Substance: BUDESONIDE\FORMOTEROL FUMARATE DIHYDRATE
     Indication: ASTHMA
     Dosage: 180/4.5 MCG, TWICE A DAY
     Route: 055
     Dates: start: 201809
  2. ALBUTEROL SULFATE PRO AIR [Concomitant]
     Indication: INHALATION THERAPY
     Route: 055

REACTIONS (6)
  - Memory impairment [Unknown]
  - Off label use of device [Unknown]
  - Dysphonia [Not Recovered/Not Resolved]
  - Intentional product misuse [Unknown]
  - Wrong technique in device usage process [Recovered/Resolved]
  - Device malfunction [Recovering/Resolving]

NARRATIVE: CASE EVENT DATE: 201809
